FAERS Safety Report 6501528-0 (Version None)
Quarter: 2009Q4

REPORT INFORMATION
  Report Type: 
  Country: None (occurrence: None)
  Receive Date: 20091216
  Receipt Date: 20091209
  Transmission Date: 20100525
  Serious: Yes (Hospitalization)
  Sender: FDA-Public Use
  Company Number: B0596928A

PATIENT
  Sex: Female
  Weight: 60 kg

DRUGS (3)
  1. PAZOPANIB [Suspect]
     Indication: SARCOMA
     Dosage: 800MG PER DAY
     Route: 048
     Dates: start: 20090928, end: 20091004
  2. PARACETAMOL [Concomitant]
     Indication: PAIN
     Dosage: 500MG AS REQUIRED
     Route: 048
     Dates: start: 20050101, end: 20091004
  3. PANTOPRAZOL [Concomitant]
     Dosage: 40MG PER DAY
     Route: 048
     Dates: start: 20081005

REACTIONS (1)
  - PAIN [None]
